FAERS Safety Report 7042935-X (Version None)
Quarter: 2010Q4

REPORT INFORMATION
  Report Type: 
  Country: None (occurrence: None)
  Receive Date: 20101013
  Receipt Date: 20100311
  Transmission Date: 20110411
  Serious: No
  Sender: FDA-Public Use
  Company Number: US-ASTRAZENECA-2010SE10688

PATIENT
  Age: 31045 Day
  Sex: Female
  Weight: 49 kg

DRUGS (5)
  1. SYMBICORT [Suspect]
     Indication: CHRONIC OBSTRUCTIVE PULMONARY DISEASE
     Dosage: 160/4.5 UG 1 PUFF TWICE A DAY
     Route: 055
     Dates: start: 20100310
  2. BETOPTIC [Concomitant]
  3. ALPHAGAN P [Concomitant]
  4. NASALCROM [Concomitant]
  5. CALCIUM WITH VITAMIN D [Concomitant]

REACTIONS (3)
  - LIP PAIN [None]
  - LIP SWELLING [None]
  - MOUTH ULCERATION [None]
